FAERS Safety Report 5727272-5 (Version None)
Quarter: 2008Q2

REPORT INFORMATION
  Report Type: 
  Country: None (occurrence: None)
  Receive Date: 20080505
  Receipt Date: 20080505
  Transmission Date: 20081010
  Serious: Yes (Other)
  Sender: FDA-Public Use
  Company Number: PHNU2008DE01191

PATIENT
  Age: 55 Year
  Sex: Female

DRUGS (2)
  1. CALCITONIN SALMON [Suspect]
     Indication: COMPLEX REGIONAL PAIN SYNDROME
     Route: 045
     Dates: start: 19970301
  2. OBSIDAN [Concomitant]
     Indication: HYPERTENSION
     Dates: start: 19910101

REACTIONS (9)
  - ATRIAL FIBRILLATION [None]
  - CARDIAC VALVE DISEASE [None]
  - GENERAL PHYSICAL HEALTH DETERIORATION [None]
  - HYPERTENSION [None]
  - HYPERTHYROIDISM [None]
  - RADIOACTIVE IODINE THERAPY [None]
  - TACHYARRHYTHMIA [None]
  - THYROID DISORDER [None]
  - VENOOCCLUSIVE LIVER DISEASE [None]
